FAERS Safety Report 7178357-0 (Version None)
Quarter: 2010Q4

REPORT INFORMATION
  Report Type: 
  Country: None (occurrence: None)
  Receive Date: 20101220
  Receipt Date: 20101210
  Transmission Date: 20110411
  Serious: Yes (Other)
  Sender: FDA-Public Use
  Company Number: BR-PFIZER INC-2010169010

PATIENT
  Sex: Female

DRUGS (1)
  1. XALATAN [Suspect]
     Indication: INTRAOCULAR PRESSURE DECREASED
     Dosage: UNK
     Route: 047

REACTIONS (2)
  - GLAUCOMA SURGERY [None]
  - INTRAOCULAR LENS IMPLANT [None]
